FAERS Safety Report 7528955-7 (Version None)
Quarter: 2011Q2

REPORT INFORMATION
  Report Type: 
  Country: None (occurrence: None)
  Receive Date: 20110607
  Receipt Date: 20110531
  Transmission Date: 20111010
  Serious: Yes (Other)
  Sender: FDA-Public Use
  Company Number: JP-PFIZER INC-2011075417

PATIENT
  Age: 25 Year
  Sex: Male
  Weight: 36 kg

DRUGS (15)
  1. ZYVOX [Suspect]
     Indication: PNEUMONIA
     Dosage: 600 MG, 2X/DAY
     Route: 041
     Dates: start: 20090223, end: 20090302
  2. COLISTIN [Concomitant]
     Dosage: 100 MG, 2X/DAY
     Route: 065
  3. MICAFUNGIN SODIUM [Concomitant]
     Indication: PULMONARY MYCOSIS
     Dosage: 300 MG, 1X/DAY
     Route: 041
     Dates: start: 20090223, end: 20090224
  4. PIPERACILLIN AND TAZOBACTAM [Concomitant]
     Dosage: 4.5 G, 3X/DAY
     Route: 065
  5. MICAFUNGIN SODIUM [Concomitant]
     Dosage: 100 MG, 1X/DAY
     Route: 041
     Dates: start: 20090225
  6. TOBRAMYCIN [Suspect]
     Dosage: 120 MG, 3X/DAY
     Route: 055
     Dates: start: 20090221, end: 20090225
  7. PIPERACILLIN AND TAZOBACTAM [Concomitant]
     Dosage: 4.5 G, 4X/DAY
     Route: 065
  8. ISEPAMICIN [Concomitant]
     Dosage: 400 MG, 1X/DAY
     Route: 065
  9. TOBRAMYCIN [Concomitant]
     Dosage: 60 MG, 2X/DAY
     Route: 045
     Dates: start: 20090302
  10. SOLU-MEDROL [Concomitant]
     Indication: LUNG TRANSPLANT REJECTION
     Dosage: 500 MG, 1X/DAY
     Route: 041
     Dates: start: 20090223, end: 20090225
  11. PROGRAF [Concomitant]
     Indication: PROPHYLAXIS AGAINST TRANSPLANT REJECTION
     Dosage: 3 MG, 2X/DAY
     Dates: start: 20090222
  12. TOBRAMYCIN [Suspect]
     Dosage: 60 MG, 3X/DAY
     Route: 055
     Dates: start: 20090226, end: 20090301
  13. SULFAMETHOXAZOLE [Concomitant]
     Indication: PNEUMOCYSTIS JIROVECI PNEUMONIA
     Dosage: 1 G, 1X/DAY
     Route: 041
     Dates: start: 20090225
  14. GANCICLOVIR [Concomitant]
     Indication: CYTOMEGALOVIRUS INFECTION
     Dosage: 50 MG, 1X/DAY
     Route: 041
     Dates: start: 20090217
  15. TOBRAMYCIN [Suspect]
     Indication: PSEUDOMONAS INFECTION
     Dosage: 120 MG, 4X/DAY
     Route: 055
     Dates: start: 20090219, end: 20090220

REACTIONS (1)
  - RENAL IMPAIRMENT [None]
